FAERS Safety Report 12980846 (Version 1)
Quarter: 2016Q4

REPORT INFORMATION
  Report Type: Spontaneous
  Country: JP (occurrence: JP)
  Receive Date: 20161128
  Receipt Date: 20161128
  Transmission Date: 20170207
  Serious: Yes (Hospitalization, Other)
  Sender: FDA-Public Use
  Company Number: JP-MUNDIPHARMA DS AND PHARMACOVIGILANCE-GBR-2016-0040520

PATIENT
  Age: 78 Year
  Sex: Male

DRUGS (19)
  1. OXYCONTIN [Suspect]
     Active Substance: OXYCODONE HYDROCHLORIDE
     Dosage: 30 MG, DAILY (15 MG TWICE DAILY)
     Route: 048
     Dates: start: 20160109, end: 20160117
  2. TRAMAL [Concomitant]
     Active Substance: TRAMADOL
     Indication: RECTAL CANCER RECURRENT
     Dosage: 200 MG, DAILY (8 TABLETS, DAILY)
     Route: 065
     Dates: start: 20151218
  3. CALONAL [Concomitant]
     Active Substance: ACETAMINOPHEN
     Indication: RECTAL CANCER RECURRENT
     Dosage: 2000 MG, DAILY
     Route: 048
     Dates: end: 20160919
  4. OXYCONTIN [Suspect]
     Active Substance: OXYCODONE HYDROCHLORIDE
     Dosage: 60 MG, DAILY (30 MG TWICE DAILY)
     Route: 048
     Dates: start: 20160502, end: 20160714
  5. OXYCONTIN [Suspect]
     Active Substance: OXYCODONE HYDROCHLORIDE
     Dosage: 50 MG, DAILY (25 MG TWICE DAILY)
     Route: 048
     Dates: start: 20160317, end: 20160501
  6. OPSO [Suspect]
     Active Substance: MORPHINE HYDROCHLORIDE
     Dosage: 5 MG, PRN (ABOUT 5 TIMES, DAILY)
     Route: 048
     Dates: start: 20160109, end: 20160811
  7. OXINORM [Suspect]
     Active Substance: OXYCODONE HYDROCHLORIDE
     Indication: RECTAL CANCER RECURRENT
     Dosage: 2.5 MG, 5-10 TIMES DAILY
     Route: 048
     Dates: end: 20160919
  8. OXINORM [Suspect]
     Active Substance: OXYCODONE HYDROCHLORIDE
     Dosage: 4-5 TIMES DAILY
     Route: 048
     Dates: start: 20160829
  9. LOXOPROFEN [Concomitant]
     Active Substance: LOXOPROFEN
     Indication: RECTAL CANCER RECURRENT
     Dosage: UNK
     Route: 048
     Dates: start: 20160822, end: 20160905
  10. OXYCONTIN [Suspect]
     Active Substance: OXYCODONE HYDROCHLORIDE
     Dosage: 40 MG, DAILY (20 MG TWICE DAILY)
     Route: 048
     Dates: start: 20160118, end: 20160316
  11. OPSO [Suspect]
     Active Substance: MORPHINE HYDROCHLORIDE
     Indication: RECTAL CANCER RECURRENT
     Dosage: 10 MG, ABOUT 10 TIMES DAILY
     Route: 048
     Dates: start: 20160808, end: 20160829
  12. FENTOS [Concomitant]
     Active Substance: FENTANYL
     Dosage: 4 MG, DAILY
     Route: 003
     Dates: start: 20160826, end: 20160901
  13. OXYCONTIN [Suspect]
     Active Substance: OXYCODONE HYDROCHLORIDE
     Indication: RECTAL CANCER RECURRENT
     Dosage: 90 MG, DAILY (45 MG TWICE DAILY)
     Route: 048
     Dates: start: 20160808, end: 20160826
  14. OPSO [Suspect]
     Active Substance: MORPHINE HYDROCHLORIDE
     Dosage: 5 MG, PRN (OVER 10 TIMES, DAILY)
     Route: 048
     Dates: start: 20160802, end: 201608
  15. FENTOS [Concomitant]
     Active Substance: FENTANYL
     Indication: RECTAL CANCER RECURRENT
     Dosage: 5 MG, DAILY
     Route: 003
     Dates: start: 20160902
  16. TRAMAL [Concomitant]
     Active Substance: TRAMADOL
     Dosage: 100 MG, DAILY (4 TABLETS, DAILY)
     Route: 065
     Dates: start: 20151117
  17. ETODOLAC. [Concomitant]
     Active Substance: ETODOLAC
     Indication: RECTAL CANCER RECURRENT
     Dosage: 400 MG, DAILY
     Route: 048
     Dates: start: 20141208
  18. ABSTRAL [Concomitant]
     Active Substance: FENTANYL CITRATE
     Indication: RECTAL CANCER RECURRENT
     Dosage: 100 MCG, DAILY
     Route: 060
     Dates: start: 20160916, end: 20160916
  19. OXYCONTIN [Suspect]
     Active Substance: OXYCODONE HYDROCHLORIDE
     Dosage: 80 MG, DAILY (40 MG TWICE DAILY)
     Route: 048
     Dates: start: 20160715, end: 20160807

REACTIONS (3)
  - Infection [Unknown]
  - Drug dependence [Recovered/Resolved]
  - Drug dependence [Recovered/Resolved]

NARRATIVE: CASE EVENT DATE: 20160802
